FAERS Safety Report 11192809 (Version 1)
Quarter: 2015Q2

REPORT INFORMATION
  Report Type: Spontaneous
  Country: US (occurrence: None)
  Receive Date: 20150612
  Receipt Date: 20150612
  Transmission Date: 20150821
  Serious: Yes (Hospitalization)
  Sender: FDA-Public Use
  Company Number: IP201506-000373

PATIENT
  Age: 69 Year
  Sex: Male

DRUGS (9)
  1. RANOLAZINE (RANOLAZINE) [Suspect]
     Active Substance: RANOLAZINE
     Indication: ANGINA PECTORIS
  2. CYCLOPHOSPHAMIDE. [Concomitant]
     Active Substance: CYCLOPHOSPHAMIDE
  3. PAMIDRONATE [Concomitant]
     Active Substance: PAMIDRONATE DISODIUM
  4. DEXAMETHASONE. [Concomitant]
     Active Substance: DEXAMETHASONE
  5. TYLENOL [Concomitant]
     Active Substance: ACETAMINOPHEN
  6. OXYCODONE [Concomitant]
     Active Substance: OXYCODONE
  7. ACYCLOVIR (ACYCLOVIR) [Suspect]
     Active Substance: ACYCLOVIR
  8. BORTEZOMIB [Concomitant]
     Active Substance: BORTEZOMIB
  9. ALLOPURINOL (ALLOPURINOL) (ALLOPURINOL) [Suspect]
     Active Substance: ALLOPURINOL
     Indication: PROPHYLAXIS

REACTIONS (1)
  - Anaphylactic reaction [None]
